FAERS Safety Report 8655465 (Version 2)
Quarter: 2012Q4

REPORT INFORMATION
  Report Type: Report from Study
  Country: FR (occurrence: FR)
  Receive Date: 20120709
  Receipt Date: 20121203
  Transmission Date: 20130627
  Serious: Yes (Hospitalization)
  Sender: FDA-Public Use
  Company Number: FR-BAXTER-2011BH035046

PATIENT
  Age: 54 Year
  Sex: Male
  Weight: 80 kg

DRUGS (17)
  1. ENDOXAN 2000 MG, LYOPHILISAT POUR SOLUTION INJECTABLE [Suspect]
     Indication: NON-HODGKIN^S LYMPHOMA
     Route: 065
  2. RITUXIMAB [Suspect]
     Indication: NON-HODGKIN^S LYMPHOMA
     Route: 058
     Dates: start: 20110615, end: 20110907
  3. VINCRISTINE [Suspect]
     Indication: NON-HODGKIN^S LYMPHOMA
     Route: 065
  4. PREDNISONE [Suspect]
     Indication: NON-HODGKIN^S LYMPHOMA
     Route: 065
  5. OXYCONTIN [Concomitant]
     Indication: DORSALGIA
     Route: 065
     Dates: start: 20110616
  6. ZOLPIDEM TARTRATE [Concomitant]
     Indication: INSOMNIA
     Route: 065
  7. XANAX [Concomitant]
     Indication: ANXIETY
     Route: 065
  8. INEXIUM /01479302/ [Concomitant]
     Indication: HIATAL HERNIA
     Route: 065
     Dates: start: 1982, end: 20111125
  9. PARACETAMOL [Concomitant]
     Indication: DORSALGIA
     Route: 065
     Dates: start: 201106
  10. POLARAMINE [Concomitant]
     Indication: DRUG USE FOR UNKNOWN INDICATION
     Route: 065
     Dates: start: 20110615
  11. KYTRIL [Concomitant]
     Indication: HIATAL HERNIA
     Route: 065
     Dates: start: 20110817, end: 20111128
  12. ZELITREX [Concomitant]
     Indication: DRUG USE FOR UNKNOWN INDICATION
     Route: 065
     Dates: start: 20110725, end: 20110926
  13. SODIUM BICARBONATE [Concomitant]
     Indication: DRUG USE FOR UNKNOWN INDICATION
     Route: 065
     Dates: start: 20110725
  14. CLARADOL [Concomitant]
     Indication: DORSALGIA
     Route: 065
     Dates: start: 20110615
  15. CLARADOL [Concomitant]
     Route: 065
     Dates: start: 20110905
  16. PIASCLEDINE                        /00809501/ [Concomitant]
     Indication: DORSALGIA
     Route: 065
     Dates: start: 201109, end: 20110926
  17. OXYNORM [Concomitant]
     Indication: DORSALGIA
     Route: 065
     Dates: start: 20110616, end: 20110905

REACTIONS (1)
  - Bacterial prostatitis [Recovered/Resolved]
